FAERS Safety Report 11173839 (Version 1)
Quarter: 2015Q2

REPORT INFORMATION
  Report Type: Spontaneous
  Country: US (occurrence: None)
  Receive Date: 20150605
  Receipt Date: 20150605
  Transmission Date: 20150821
  Serious: Yes (Other)
  Sender: FDA-Public Use
  Company Number: FK201502546

PATIENT

DRUGS (1)
  1. ETOPOSIDE. [Suspect]
     Active Substance: ETOPOSIDE
     Indication: PRODUCT USED FOR UNKNOWN INDICATION
     Dates: start: 20150519, end: 20150519

REACTIONS (4)
  - Flushing [None]
  - Dyspnoea [None]
  - Anaphylactic reaction [None]
  - Hypotension [None]

NARRATIVE: CASE EVENT DATE: 20150519
